FAERS Safety Report 9032626 (Version 1)
Quarter: 2013Q1

REPORT INFORMATION
  Report Type: Spontaneous
  Country: US (occurrence: None)
  Receive Date: 20130109
  Receipt Date: 20130109
  Transmission Date: 20140127
  Serious: Yes (Life-Threatening, Hospitalization)
  Sender: FDA-Public Use
  Company Number: FK201204201

PATIENT
  Age: 74 Year
  Sex: Female
  Weight: 55.1 kg

DRUGS (14)
  1. DEXAMETHASONE INJECTION (MANUFACTURER UNKNOWN) (DEXAMETHOSONE SODIUM PHOSPHATE) (DEXAMETHASONE SODIUM PHOSPHATE) [Suspect]
     Indication: PLASMA CELL MYELOMA
     Dosage: 40 MG, ONCE DAILY FOR 4 DAYS, INTRAVENOUS (NOT OTHERWISE SPECIFIED)?
     Route: 042
     Dates: start: 20110610
  2. DEXAMETHASONE INJECTION (MANUFACTURER UNKNOWN) (DEXAMETHOSONE SODIUM PHOSPHATE) (DEXAMETHASONE SODIUM PHOSPHATE) [Suspect]
     Indication: PLASMA CELL MYELOMA
     Dosage: 40 MG, ONCE DAILY FOR 4 DAYS, INTRAVENOUS (NOT OTHERWISE SPECIFIED)?
     Route: 042
     Dates: start: 20110610
  3. VELCADE (BORTEZOMIB) [Suspect]
     Dosage: 2.1 MG, DAYS 1, 3, 8, AND 10, INTRAVENOUS (NOT OTHERWISE SPECIFIED)
     Route: 042
     Dates: start: 20110610, end: 20110715
  4. CYCLOPHOSPHAMIDE (CYCLOPHOSPHAMIDE) [Suspect]
     Dosage: 500 MG, DAYS 18, 8, 15, AND 22, INTRAVENOUS (NOT OTHERWISE SPECIFIED)
     Route: 042
  5. VALTREX (VALACICLOVIR HYDROCHLORIDE) [Concomitant]
  6. NORVASC [Concomitant]
  7. PROZAC [Concomitant]
  8. ATARAX [Concomitant]
  9. MEGACE (MEGESTROL ACETATE) [Concomitant]
  10. FLAGYL [Concomitant]
  11. ZOFRAN [Concomitant]
  12. OXYCODONE (OXYCODONE) [Concomitant]
  13. PROTONIX [Concomitant]
  14. RENAGEL [Concomitant]

REACTIONS (3)
  - Mental status changes [None]
  - Hypercalcaemia [None]
  - Urinary tract infection [None]
